FAERS Safety Report 7797814-7 (Version None)
Quarter: 2011Q4

REPORT INFORMATION
  Report Type: 
  Country: None (occurrence: None)
  Receive Date: 20111005
  Receipt Date: 20110927
  Transmission Date: 20120403
  Serious: Yes (Hospitalization, Other)
  Sender: FDA-Public Use
  Company Number: JP-CEPHALON-2011004518

PATIENT
  Age: 61 Year
  Sex: Male
  Weight: 80 kg

DRUGS (8)
  1. BENDAMUSTINE HCL [Suspect]
     Indication: B-CELL LYMPHOMA
     Route: 042
     Dates: start: 20110118, end: 20110119
  2. AMLODIPINE BESYLATE [Concomitant]
  3. INSULIN HUMAN [Concomitant]
  4. FLUCONAZOLE [Concomitant]
     Dates: start: 20110118, end: 20110124
  5. ITRACONAZOLE [Concomitant]
     Dates: start: 20110125, end: 20110511
  6. AZASETRON HYDROCHLORIDE [Concomitant]
  7. BENDAMUSTINE HCL [Suspect]
     Route: 042
     Dates: start: 20110208, end: 20110208
  8. SULFAMETHOXAZOLE AND TRIMETHOPRIM [Concomitant]
     Dates: start: 20110118

REACTIONS (8)
  - SEPSIS [None]
  - PYREXIA [None]
  - GENERALISED ERYTHEMA [None]
  - LYMPHOCYTE COUNT DECREASED [None]
  - BLOOD CREATININE INCREASED [None]
  - C-REACTIVE PROTEIN INCREASED [None]
  - WHITE BLOOD CELL COUNT DECREASED [None]
  - PLATELET COUNT DECREASED [None]
